FAERS Safety Report 8887086 (Version 1)
Quarter: 2012Q4

REPORT INFORMATION
  Report Type: 
  Country: US (occurrence: US)
  Receive Date: 20121105
  Receipt Date: 20121105
  Transmission Date: 20130627
  Serious: Yes (Other)
  Sender: FDA-Public Use
  Company Number: CHPA2012US022726

PATIENT
  Age: 62 Year
  Sex: Female

DRUGS (2)
  1. EXCEDRIN EXTRA STRENGTH [Suspect]
     Dosage: 2 geltabs twice daily
     Route: 048
     Dates: start: 1997, end: 2012
  2. EXCEDRIN SINUS HEADACHE [Suspect]
     Indication: HEADACHE
     Dosage: 2 caplets twice per day as needed
     Route: 048
     Dates: start: 1997

REACTIONS (5)
  - Osteitis deformans [Not Recovered/Not Resolved]
  - Osteoporosis [Not Recovered/Not Resolved]
  - Arthritis [Not Recovered/Not Resolved]
  - Neuralgia [Not Recovered/Not Resolved]
  - Arthralgia [Not Recovered/Not Resolved]
